FAERS Safety Report 19499002 (Version 1)
Quarter: 2021Q3

REPORT INFORMATION
  Report Type: Spontaneous
  Country: US (occurrence: PY)
  Receive Date: 20210706
  Receipt Date: 20210706
  Transmission Date: 20211014
  Serious: Yes (Other)
  Sender: FDA-Public Use
  Company Number: PY-BIOMARINAP-PY-2021-137354

PATIENT
  Age: 8 Year
  Sex: Female

DRUGS (1)
  1. ALDURAZYME [Suspect]
     Active Substance: LARONIDASE
     Indication: MUCOPOLYSACCHARIDOSIS I
     Dosage: 0.58 MICROGRAM/KILOGRAM, QW
     Route: 041

REACTIONS (2)
  - Macroglossia [Unknown]
  - Respiratory disorder [Unknown]
